FAERS Safety Report 11414542 (Version 1)
Quarter: 2015Q3

REPORT INFORMATION
  Report Type: Spontaneous
  Country: CA (occurrence: CA)
  Receive Date: 20150824
  Receipt Date: 20150824
  Transmission Date: 20151125
  Serious: Yes (Other)
  Sender: FDA-Public Use
  Company Number: CA-HOSPIRA-2979240

PATIENT

DRUGS (4)
  1. BUTORPHANOL [Suspect]
     Active Substance: BUTORPHANOL
     Indication: SEDATIVE THERAPY
     Route: 030
  2. PLASMALYTE 148 [Suspect]
     Active Substance: ELECTROLYTES NOS
     Indication: PRODUCT USE ISSUE
     Route: 042
  3. PLASMALYTE 148 [Suspect]
     Active Substance: ELECTROLYTES NOS
     Indication: PRODUCT USED FOR UNKNOWN INDICATION
     Route: 042
  4. DEXMEDETOMIDINE HYDROCHLORIDE. [Suspect]
     Active Substance: DEXMEDETOMIDINE HYDROCHLORIDE
     Indication: SEDATIVE THERAPY
     Route: 030

REACTIONS (3)
  - Unresponsive to stimuli [Recovered/Resolved]
  - Heart rate decreased [Recovered/Resolved]
  - Drooling [Recovered/Resolved]
